FAERS Safety Report 6613171-3 (Version None)
Quarter: 2010Q1

REPORT INFORMATION
  Report Type: 
  Country: None (occurrence: None)
  Receive Date: 20100304
  Receipt Date: 20100219
  Transmission Date: 20100710
  Serious: Yes (Hospitalization)
  Sender: FDA-Public Use
  Company Number: US-JNJFOC-20100210317

PATIENT
  Age: 4 Month
  Sex: Female

DRUGS (1)
  1. CHILDREN'S TYLENOL PLUS FLU [Suspect]
     Indication: DRUG USE FOR UNKNOWN INDICATION
     Dosage: FOR 5 DAYS
     Route: 048

REACTIONS (5)
  - ACCIDENTAL OVERDOSE [None]
  - HEPATIC ENZYME INCREASED [None]
  - LETHARGY [None]
  - PALLOR [None]
  - WRONG DRUG ADMINISTERED [None]
